FAERS Safety Report 9144967 (Version 2)
Quarter: 2013Q1

REPORT INFORMATION
  Report Type: Spontaneous
  Country: FR (occurrence: FR)
  Receive Date: 20130307
  Receipt Date: 20130311
  Transmission Date: 20140127
  Serious: Yes (Hospitalization)
  Sender: FDA-Public Use
  Company Number: FR-ABBOTT-13X-056-1059333-00

PATIENT
  Age: 75 Year
  Sex: Female

DRUGS (11)
  1. UTROGESTAN [Suspect]
     Indication: PRODUCT USED FOR UNKNOWN INDICATION
     Route: 048
  2. ESTREVA [Suspect]
     Indication: PRODUCT USED FOR UNKNOWN INDICATION
  3. MEDIATOR [Suspect]
     Indication: OVERWEIGHT
     Route: 048
     Dates: start: 1994
  4. MEDIATOR [Suspect]
     Route: 048
     Dates: start: 2001, end: 2003
  5. MEDIATOR [Suspect]
     Route: 048
     Dates: start: 2007, end: 2008
  6. ARCOXIA [Suspect]
     Indication: PRODUCT USED FOR UNKNOWN INDICATION
     Route: 048
     Dates: end: 20110510
  7. AVLOCARDYL [Suspect]
     Indication: PRODUCT USED FOR UNKNOWN INDICATION
     Route: 048
  8. LEVOTHYROX [Suspect]
     Indication: PRODUCT USED FOR UNKNOWN INDICATION
     Route: 048
  9. FLEXEA [Concomitant]
     Indication: PRODUCT USED FOR UNKNOWN INDICATION
     Route: 065
  10. IXPRIM [Concomitant]
     Indication: PRODUCT USED FOR UNKNOWN INDICATION
     Route: 065
  11. BIPROFENID [Concomitant]
     Indication: PRODUCT USED FOR UNKNOWN INDICATION
     Route: 065
     Dates: start: 20110510

REACTIONS (1)
  - Pulmonary arterial hypertension [Unknown]
